FAERS Safety Report 5004967-2 (Version None)
Quarter: 2006Q2

REPORT INFORMATION
  Report Type: 
  Country: None (occurrence: None)
  Receive Date: 20060517
  Receipt Date: 20060510
  Transmission Date: 20061013
  Serious: Yes (Death)
  Sender: FDA-Public Use
  Company Number: GB-BOEHRINGER INGELHEIM PHARMACEUTICALS, INC.-2006-UK-02442UK

PATIENT

DRUGS (2)
  1. NEVIRAPINE (EU/1/97/055/001) [Suspect]
     Indication: HIV INFECTION
     Dosage: 200 - 400 MG DAILY.
     Route: 015
  2. COMBIVIR [Concomitant]
     Indication: HIV INFECTION
     Route: 015

REACTIONS (2)
  - DRUG EXPOSURE DURING PREGNANCY [None]
  - HEPATITIS FULMINANT [None]
